FAERS Safety Report 19151064 (Version 1)
Quarter: 2021Q2

REPORT INFORMATION
  Report Type: Spontaneous
  Country: CA (occurrence: CA)
  Receive Date: 20210419
  Receipt Date: 20210419
  Transmission Date: 20210717
  Serious: Yes (Other)
  Sender: FDA-Public Use
  Company Number: CA-TEVA-2021-CA-1901208

PATIENT
  Age: 75 Year
  Sex: Female
  Weight: 70 kg

DRUGS (2)
  1. NAPROXEN. [Suspect]
     Active Substance: NAPROXEN
     Indication: ARTHRALGIA
     Route: 065
  2. PREGABALIN. [Suspect]
     Active Substance: PREGABALIN
     Indication: ARTHRALGIA
     Route: 065

REACTIONS (3)
  - Toxic epidermal necrolysis [Unknown]
  - Product use in unapproved indication [Unknown]
  - Rash erythematous [Unknown]
